FAERS Safety Report 9271429 (Version 1)
Quarter: 2013Q2

REPORT INFORMATION
  Report Type: Spontaneous
  Country: BR (occurrence: BR)
  Receive Date: 20130506
  Receipt Date: 20130506
  Transmission Date: 20140414
  Serious: Yes (Other)
  Sender: FDA-Public Use
  Company Number: BR-PFIZER INC-2013139487

PATIENT
  Age: 76 Year
  Sex: Female
  Weight: 63 kg

DRUGS (1)
  1. EFEXOR XR [Suspect]
     Indication: MEMORY IMPAIRMENT
     Dosage: 1 CAPSULE OF 75 MG, 1X/DAY
     Route: 048
     Dates: start: 20130302

REACTIONS (2)
  - Spinal deformity [Unknown]
  - Off label use [Not Recovered/Not Resolved]
